FAERS Safety Report 7740661-2 (Version None)
Quarter: 2011Q3

REPORT INFORMATION
  Report Type: 
  Country: None (occurrence: None)
  Receive Date: 20110909
  Receipt Date: 20110907
  Transmission Date: 20111222
  Serious: Yes (Death)
  Sender: FDA-Public Use
  Company Number: NL-MERCK-1109NLD00003

PATIENT
  Age: 77 Year
  Sex: Female

DRUGS (11)
  1. FLUVASTATIN SODIUM [Concomitant]
     Route: 048
  2. TEMAZEPAM [Concomitant]
     Route: 048
  3. EMEND [Suspect]
     Indication: NAUSEA
     Route: 048
     Dates: start: 20110501
  4. CARBASPIRIN CALCIUM [Concomitant]
     Route: 048
  5. PANTOPRAZOLE [Concomitant]
     Route: 048
  6. POLYETHYLENE GLYCOL 3350 AND POTASSIUM CHLORIDE AND SODIUM BICARBONATE [Concomitant]
     Route: 048
  7. HYDROCHLOROTHIAZIDE [Concomitant]
     Route: 048
  8. HYDROCORTISONE AND MICONAZOLE NITRATE [Concomitant]
     Route: 061
  9. ISOSORBIDE DINITRATE [Concomitant]
     Route: 048
  10. ATENOLOL [Concomitant]
     Route: 048
  11. CAPECITABINE [Concomitant]
     Route: 065

REACTIONS (2)
  - INAPPROPRIATE ANTIDIURETIC HORMONE SECRETION [None]
  - HYPONATRAEMIA [None]
